FAERS Safety Report 24435109 (Version 1)
Quarter: 2024Q4

REPORT INFORMATION
  Report Type: Report from Study
  Country: ZA (occurrence: ZA)
  Receive Date: 20241014
  Receipt Date: 20241014
  Transmission Date: 20250114
  Serious: Yes (Death)
  Sender: ABBVIE
  Company Number: ZA-ABBVIE-5961713

PATIENT
  Sex: Female

DRUGS (2)
  1. BOTOX [Suspect]
     Active Substance: ONABOTULINUMTOXINA
     Indication: Muscle spasticity
     Dosage: TIME INTERVAL: AS NECESSARY: 300 U (STRENGTH 100+200 U)
     Route: 065
     Dates: start: 20240627, end: 20240627
  2. BOTOX [Suspect]
     Active Substance: ONABOTULINUMTOXINA
     Indication: Muscle spasticity
     Dosage: TIME INTERVAL: AS NECESSARY: 300 U (STRENGTH 100+200 U)
     Route: 065
     Dates: start: 20240627, end: 20240627

REACTIONS (1)
  - Death [Fatal]
